FAERS Safety Report 23636646 (Version 2)
Quarter: 2024Q1

REPORT INFORMATION
  Report Type: Spontaneous
  Country: US (occurrence: US)
  Receive Date: 20240315
  Receipt Date: 20240324
  Transmission Date: 20240409
  Serious: Yes (Life-Threatening, Hospitalization, Other)
  Sender: FDA-Public Use
  Company Number: US-MLMSERVICE-20240226-4846358-1

PATIENT
  Age: 37 Year
  Sex: Male
  Weight: 73.3 kg

DRUGS (12)
  1. LIDOCAINE [Interacting]
     Active Substance: LIDOCAINE
     Indication: Anaesthetic premedication
     Dosage: 70 MILLILITER, TOTAL
     Route: 058
  2. LIDOCAINE [Interacting]
     Active Substance: LIDOCAINE
     Dosage: 20 MILLILITER
     Route: 058
  3. BUPROPION [Interacting]
     Active Substance: BUPROPION
     Indication: Product used for unknown indication
     Dosage: 150 MILLIGRAM, ONCE A DAY
     Route: 065
  4. METOPROLOL [Interacting]
     Active Substance: METOPROLOL
     Indication: Hypertension
     Dosage: 50 MILLIGRAM, AS NECESSARY
     Route: 065
  5. METOPROLOL [Interacting]
     Active Substance: METOPROLOL
     Dosage: 2.5 MILLIGRAM
     Route: 042
  6. RIZATRIPTAN BENZOATE [Concomitant]
     Active Substance: RIZATRIPTAN BENZOATE
     Indication: Headache
     Dosage: 10 MILLIGRAM, AS NECESSARY
     Route: 065
  7. FAMOTIDINE [Concomitant]
     Active Substance: FAMOTIDINE
     Indication: Gastrooesophageal reflux disease
     Dosage: 40 MICROGRAM, TWO TIMES A DAY
     Route: 065
  8. CHOLECALCIFEROL [Concomitant]
     Active Substance: CHOLECALCIFEROL
     Indication: Product used for unknown indication
     Dosage: 50 MICROGRAM, ONCE A DAY
     Route: 065
  9. FENTANYL [Concomitant]
     Active Substance: FENTANYL\FENTANYL CITRATE
     Indication: Anaesthetic premedication
     Dosage: 50 MICROGRAM
     Route: 042
  10. MIDAZOLAM [Concomitant]
     Active Substance: MIDAZOLAM
     Indication: Anaesthetic premedication
     Dosage: 2 MILLIGRAM
     Route: 042
  11. GABAPENTIN [Concomitant]
     Active Substance: GABAPENTIN
     Indication: Neuralgia
     Dosage: 300 MILLIGRAM, AS NECESSARY
     Route: 065
  12. DIVALPROEX SODIUM [Concomitant]
     Active Substance: DIVALPROEX SODIUM
     Indication: Product used for unknown indication
     Dosage: 750 MICROGRAM, ONCE A DAY
     Route: 065

REACTIONS (3)
  - Local anaesthetic systemic toxicity [Recovered/Resolved]
  - Overdose [Recovered/Resolved]
  - Drug interaction [Unknown]
